FAERS Safety Report 19950305 (Version 1)
Quarter: 2021Q4

REPORT INFORMATION
  Report Type: Spontaneous
  Country: US (occurrence: US)
  Receive Date: 20211013
  Receipt Date: 20211013
  Transmission Date: 20220303
  Serious: No
  Sender: FDA-Public Use
  Company Number: US-009507513-2110USA002375

PATIENT
  Age: 35 Year
  Sex: Male

DRUGS (2)
  1. KEYTRUDA [Suspect]
     Active Substance: PEMBROLIZUMAB
     Dosage: UNK
  2. PIROXICAM [Concomitant]
     Active Substance: PIROXICAM
     Dosage: UNK

REACTIONS (1)
  - Product prescribing issue [Unknown]
